FAERS Safety Report 11897953 (Version 2)
Quarter: 2016Q1

REPORT INFORMATION
  Report Type: Spontaneous
  Country: US (occurrence: US)
  Receive Date: 20160108
  Receipt Date: 20160118
  Transmission Date: 20160526
  Serious: Yes (Other)
  Sender: FDA-Public Use
  Company Number: US-ENDO PHARMACEUTICALS INC.-2015-005224

PATIENT
  Age: 66 Year
  Sex: Female
  Weight: 56.75 kg

DRUGS (2)
  1. PREDNISONE TABLETS 5MG [Suspect]
     Active Substance: PREDNISONE
     Indication: PAIN
     Route: 048
     Dates: start: 2013, end: 2013
  2. ZOLOFT [Concomitant]
     Active Substance: SERTRALINE HYDROCHLORIDE
     Indication: DEPRESSION
     Route: 048
     Dates: start: 1986

REACTIONS (5)
  - Abasia [Recovered/Resolved]
  - Unevaluable event [Recovered/Resolved]
  - Ill-defined disorder [Unknown]
  - Foot fracture [Recovered/Resolved]
  - Drug ineffective [Unknown]

NARRATIVE: CASE EVENT DATE: 2013
